FAERS Safety Report 5971315-0 (Version None)
Quarter: 2008Q4

REPORT INFORMATION
  Report Type: 
  Country: None (occurrence: None)
  Receive Date: 20081128
  Receipt Date: 20081120
  Transmission Date: 20090506
  Serious: Yes (Other)
  Sender: FDA-Public Use
  Company Number: IN-PFIZER INC-2008099229

PATIENT
  Age: 60 Year
  Sex: Male
  Weight: 85 kg

DRUGS (1)
  1. CYCLOKAPRON (IV) [Suspect]
     Indication: SPINAL OPERATION
     Route: 042
     Dates: start: 20081117, end: 20081117

REACTIONS (1)
  - BLINDNESS UNILATERAL [None]
